FAERS Safety Report 11328691 (Version 3)
Quarter: 2021Q2

REPORT INFORMATION
  Report Type: Spontaneous
  Country: FR (occurrence: FR)
  Receive Date: 20150731
  Receipt Date: 20210618
  Transmission Date: 20210716
  Serious: Yes (Congenital Anomaly, Other)
  Sender: FDA-Public Use
  Company Number: FR-ABBVIE-15P-056-1435103-00

PATIENT
  Sex: Female
  Weight: 3.97 kg

DRUGS (2)
  1. DEPAKINE CHRONO [Suspect]
     Active Substance: VALPROATE SODIUM
     Indication: MATERNAL EXPOSURE TIMING UNSPECIFIED
     Route: 064
     Dates: end: 20091222
  2. SPECIAFOLDINE [Concomitant]
     Active Substance: FOLIC ACID
     Indication: PRODUCT USED FOR UNKNOWN INDICATION

REACTIONS (18)
  - Joint laxity [Not Recovered/Not Resolved]
  - Foetal exposure during pregnancy [Unknown]
  - Dysmorphism [Not Recovered/Not Resolved]
  - Ear infection [Not Recovered/Not Resolved]
  - Talipes [Not Recovered/Not Resolved]
  - Dyspraxia [Not Recovered/Not Resolved]
  - Psychomotor retardation [Not Recovered/Not Resolved]
  - Speech disorder developmental [Not Recovered/Not Resolved]
  - Learning disorder [Not Recovered/Not Resolved]
  - Autism spectrum disorder [Not Recovered/Not Resolved]
  - Ear disorder [Not Recovered/Not Resolved]
  - Hypotonia [Not Recovered/Not Resolved]
  - Fine motor skill dysfunction [Not Recovered/Not Resolved]
  - Aphasia [Not Recovered/Not Resolved]
  - Fatigue [Not Recovered/Not Resolved]
  - Respiratory disorder [Not Recovered/Not Resolved]
  - Pharyngeal disorder [Not Recovered/Not Resolved]
  - Motor developmental delay [Unknown]
